FAERS Safety Report 22124168 (Version 1)
Quarter: 2023Q1

REPORT INFORMATION
  Report Type: Report from Study
  Country: GT (occurrence: GT)
  Receive Date: 20230322
  Receipt Date: 20230322
  Transmission Date: 20230417
  Serious: Yes (Other)
  Sender: FDA-Public Use
  Company Number: GT-002147023-NVSC2023GT063839

PATIENT
  Age: 79 Year
  Sex: Male

DRUGS (1)
  1. EXFORGE [Suspect]
     Active Substance: AMLODIPINE BESYLATE\VALSARTAN
     Indication: Hypertension
     Dosage: 10/320 MG, QD
     Route: 048

REACTIONS (2)
  - Cerebrovascular accident [Recovering/Resolving]
  - Gait disturbance [Unknown]

NARRATIVE: CASE EVENT DATE: 20201218
